FAERS Safety Report 13937551 (Version 2)
Quarter: 2017Q3

REPORT INFORMATION
  Report Type: Report from Study
  Country: IT (occurrence: IT)
  Receive Date: 20170905
  Receipt Date: 20170919
  Transmission Date: 20171127
  Serious: Yes (Other)
  Sender: FDA-Public Use
  Company Number: IT-GILEAD-2017-0291177

PATIENT
  Age: 77 Year
  Sex: Male

DRUGS (3)
  1. SIMEPREVIR [Suspect]
     Active Substance: SIMEPREVIR
     Indication: HEPATIC CIRRHOSIS
     Dosage: UNK
     Route: 065
  2. SOFOSBUVIR [Suspect]
     Active Substance: SOFOSBUVIR
     Indication: HEPATIC CIRRHOSIS
     Dosage: UNK
     Route: 065
  3. RIBAVIRIN. [Suspect]
     Active Substance: RIBAVIRIN
     Indication: HEPATIC CIRRHOSIS
     Dosage: UNK
     Route: 065

REACTIONS (1)
  - Syncope [Unknown]
